FAERS Safety Report 15474388 (Version 1)
Quarter: 2018Q4

REPORT INFORMATION
  Report Type: Report from Study
  Country: ZA (occurrence: ZA)
  Receive Date: 20181008
  Receipt Date: 20181008
  Transmission Date: 20190205
  Serious: Yes (Other)
  Sender: FDA-Public Use
  Company Number: ZA-SA-2018SA274246

PATIENT
  Age: 52 Year
  Sex: Female

DRUGS (2)
  1. NO STUDY DRUG GIVEN [Suspect]
     Active Substance: UNSPECIFIED INGREDIENT
  2. TOUJEO [Suspect]
     Active Substance: INSULIN GLARGINE
     Indication: TYPE 2 DIABETES MELLITUS
     Dosage: UNK
     Dates: start: 20180701, end: 20180731

REACTIONS (5)
  - Lymphoedema [Unknown]
  - Arthralgia [Unknown]
  - Sleep disorder [Unknown]
  - Sarcoidosis [Unknown]
  - Myalgia [Unknown]
